FAERS Safety Report 5241170-5 (Version None)
Quarter: 2007Q1

REPORT INFORMATION
  Report Type: 
  Country: None (occurrence: None)
  Receive Date: 20070220
  Receipt Date: 20070208
  Transmission Date: 20070707
  Serious: Yes (Hospitalization)
  Sender: FDA-Public Use
  Company Number: JP-JNJFOC-20061002810

PATIENT
  Sex: Female
  Weight: 47 kg

DRUGS (9)
  1. REMICADE [Suspect]
     Route: 042
  2. REMICADE [Suspect]
     Route: 042
  3. REMICADE [Suspect]
     Route: 042
  4. REMICADE [Suspect]
     Indication: RHEUMATOID ARTHRITIS
     Route: 042
  5. RHEUMATREX [Suspect]
     Indication: RHEUMATOID ARTHRITIS
     Route: 048
  6. MARZULENE [Concomitant]
     Dosage: 2 TAB
     Route: 048
  7. FOLIAMIN [Concomitant]
     Indication: PROPHYLAXIS
     Dosage: 2 TAB
     Route: 048
  8. MOHRUS TAPE [Concomitant]
     Indication: ANALGESIC EFFECT
  9. MOHRUS TAPE [Concomitant]
     Indication: ANTIINFLAMMATORY THERAPY
     Dosage: 2 TAB

REACTIONS (1)
  - DISSEMINATED TUBERCULOSIS [None]
